FAERS Safety Report 7792989-8 (Version None)
Quarter: 2011Q4

REPORT INFORMATION
  Report Type: 
  Country: None (occurrence: None)
  Receive Date: 20111003
  Receipt Date: 20110929
  Transmission Date: 20120403
  Serious: Yes (Other)
  Sender: FDA-Public Use
  Company Number: PHHY2011NL38942

PATIENT
  Sex: Male

DRUGS (16)
  1. OXYCONTIN [Concomitant]
     Dosage: 20 MG, BID
  2. ZOMETA [Suspect]
     Indication: PROSTATE CANCER METASTATIC
     Dosage: 4 MG/ 5 ML
     Dates: start: 20110220
  3. ZOMETA [Suspect]
     Dosage: 4 MG/ 5 ML
     Dates: start: 20110629
  4. BICALUTAMIDE [Concomitant]
     Dosage: 50 MG, QD
  5. ZOMETA [Suspect]
     Dosage: 4 MG/ 5 ML
     Dates: start: 20110829
  6. IBUPROFEN [Concomitant]
     Dosage: 400 MG, TID
  7. ZOMETA [Suspect]
     Dosage: 4 MG/ 5 ML
     Dates: start: 20110412
  8. ZOMETA [Suspect]
     Dosage: 4 MG/ 5 ML
     Dates: start: 20110929
  9. ZOMETA [Suspect]
     Dosage: 4 MG/ 5 ML
     Dates: start: 20110606
  10. PREDNISONE [Concomitant]
     Dosage: 5 MG X 2
  11. OMEPRAZOLE [Concomitant]
     Dosage: 20 MG, QD
  12. ZOMETA [Suspect]
     Dosage: 4 MG/ 5 ML
     Dates: start: 20110509
  13. DEGARELIX [Concomitant]
  14. ACETAMINOPHEN [Concomitant]
     Dosage: 1 G X 2
  15. ACETAMINOPHEN [Concomitant]
     Dosage: 1 G, WHEN NEEDED
  16. OXYCONTIN [Concomitant]
     Dosage: 10 MG, BID

REACTIONS (11)
  - METASTASES TO LUNG [None]
  - METASTASES TO LIVER [None]
  - BONE PAIN [None]
  - WEIGHT DECREASED [None]
  - PAIN IN EXTREMITY [None]
  - FATIGUE [None]
  - NEOPLASM PROGRESSION [None]
  - NEOPLASM MALIGNANT [None]
  - PROSTATIC SPECIFIC ANTIGEN INCREASED [None]
  - METASTASES TO LARGE INTESTINE [None]
  - MALAISE [None]
